FAERS Safety Report 16701719 (Version 3)
Quarter: 2019Q3

REPORT INFORMATION
  Report Type: Spontaneous
  Country: DE (occurrence: DE)
  Receive Date: 20190814
  Receipt Date: 20190910
  Transmission Date: 20191004
  Serious: Yes (Death, Other)
  Sender: FDA-Public Use
  Company Number: DE-PFIZER INC-2019344064

PATIENT
  Age: 33 Year
  Sex: Female
  Weight: 70 kg

DRUGS (16)
  1. PROPOFOL. [Suspect]
     Active Substance: PROPOFOL
     Indication: COMPUTERISED TOMOGRAM
     Dosage: 250 MG, SINGLE AT 8TH DAY OF TREATMENT FOR CT SCAN
     Route: 041
  2. PROPOFOL. [Suspect]
     Active Substance: PROPOFOL
     Dosage: DTI 400 MG/H
     Route: 041
     Dates: start: 20180513, end: 20180514
  3. PROPOFOL. [Suspect]
     Active Substance: PROPOFOL
     Dosage: DTI 200 MG/H
     Route: 041
     Dates: start: 20180514, end: 20180514
  4. PROPOFOL. [Suspect]
     Active Substance: PROPOFOL
     Dosage: 250 MG, BOLUS
     Route: 040
     Dates: start: 20180519, end: 20180519
  5. PROPOFOL. [Suspect]
     Active Substance: PROPOFOL
     Dosage: 150 MG, BOLUS
     Route: 040
     Dates: start: 20180525, end: 20180525
  6. NOREPINEPHRINE. [Concomitant]
     Active Substance: NOREPINEPHRINE
     Indication: SUPPORTIVE CARE
     Dosage: DAILY DOSE: 0.3 MG MILLGRAM(S) EVERY HOURS
     Route: 041
  7. PROPOFOL. [Suspect]
     Active Substance: PROPOFOL
     Indication: TRACHEOSTOMY
     Dosage: 150 MG, SINGLE AT 14TH DAY OF TREATMENT FOR TRACHEOSTOMY
     Route: 041
  8. MANNITOL. [Concomitant]
     Active Substance: MANNITOL
     Indication: CSF PRESSURE
     Dosage: 100 ML, AS NEEDED
     Route: 040
  9. PROPOFOL. [Suspect]
     Active Substance: PROPOFOL
     Indication: SEDATION
     Dosage: 200 - 500 MG/H FOR 83 HOURS FOR DEEP SEDATION AFTER SAB
     Route: 041
  10. DEXAMETHASONE. [Concomitant]
     Active Substance: DEXAMETHASONE
     Indication: INTRACRANIAL PRESSURE INCREASED
     Dosage: 8 MG, AS NEEDED
     Route: 040
  11. MIDAZOLAM [Concomitant]
     Active Substance: MIDAZOLAM HYDROCHLORIDE
     Indication: SEDATION
     Dosage: DAILY DOSE: 30 MG MILLGRAM(S) EVERY HOURS
     Route: 041
  12. SUFENTANIL [Concomitant]
     Active Substance: SUFENTANIL
     Indication: SEDATION
     Dosage: DAILY DOSE: 30 ?G MICROGRAM(S) EVERY HOURS
     Route: 041
  13. SIMVASTATIN. [Concomitant]
     Active Substance: SIMVASTATIN
     Dosage: 2 TIMES IN THE EVENING ADMINISTERED
     Route: 048
  14. PROPOFOL. [Suspect]
     Active Substance: PROPOFOL
     Dosage: DTI 500 MG/H
     Route: 041
     Dates: start: 20180511, end: 20180513
  15. NIMODIPINE. [Concomitant]
     Active Substance: NIMODIPINE
     Indication: PROPHYLAXIS
     Dosage: MAX. 1 MG/H FOR 35 HOURS
     Route: 041
  16. MIRENA [Concomitant]
     Active Substance: LEVONORGESTREL
     Dosage: UNK
     Route: 015

REACTIONS (8)
  - Propofol infusion syndrome [Fatal]
  - Rhabdomyolysis [Fatal]
  - Blood creatine phosphokinase increased [Fatal]
  - Lactic acidosis [Fatal]
  - Circulatory collapse [Fatal]
  - Hyperkalaemia [Fatal]
  - Multiple organ dysfunction syndrome [Fatal]
  - Gamma-glutamyltransferase increased [Unknown]

NARRATIVE: CASE EVENT DATE: 201805
